FAERS Safety Report 13531368 (Version 8)
Quarter: 2021Q1

REPORT INFORMATION
  Report Type: Spontaneous
  Country: US (occurrence: US)
  Receive Date: 20170510
  Receipt Date: 20210125
  Transmission Date: 20210419
  Serious: Yes (Hospitalization)
  Sender: FDA-Public Use
  Company Number: US-PFIZER INC-2017203900

PATIENT
  Age: 64 Year
  Sex: Female
  Weight: 82 kg

DRUGS (3)
  1. LYRICA [Suspect]
     Active Substance: PREGABALIN
     Indication: FIBROMYALGIA
     Dosage: 150 MG, 2X/DAY
     Route: 048
     Dates: start: 2009
  2. LYRICA [Suspect]
     Active Substance: PREGABALIN
     Indication: BACK PAIN
     Dosage: 150 MG, 2X/DAY
     Route: 048
  3. LYRICA [Suspect]
     Active Substance: PREGABALIN
     Dosage: 225 MG

REACTIONS (10)
  - Malaise [Unknown]
  - Eating disorder [Recovered/Resolved]
  - Psychiatric symptom [Recovered/Resolved]
  - Illness [Unknown]
  - Fatigue [Recovered/Resolved]
  - Asthenia [Recovered/Resolved]
  - Thinking abnormal [Recovered/Resolved]
  - Pain [Recovered/Resolved]
  - Bronchitis [Recovered/Resolved with Sequelae]
  - Hyperhidrosis [Unknown]

NARRATIVE: CASE EVENT DATE: 201702
